FAERS Safety Report 7061684-5 (Version None)
Quarter: 2010Q4

REPORT INFORMATION
  Report Type: 
  Country: None (occurrence: None)
  Receive Date: 20101026
  Receipt Date: 20101019
  Transmission Date: 20110411
  Serious: Yes (Hospitalization, Other)
  Sender: FDA-Public Use
  Company Number: ZA-B.I. PHARMACEUTICALS,INC./RIDGEFIELD-2010-DE-05762GD

PATIENT
  Age: 28 Year
  Sex: Female

DRUGS (3)
  1. NEVIRAPINE [Suspect]
     Indication: HIV INFECTION WHO CLINICAL STAGE II
  2. STAVUDINE [Concomitant]
     Indication: HIV INFECTION WHO CLINICAL STAGE II
  3. LAMIVUDINE [Concomitant]
     Indication: HIV INFECTION WHO CLINICAL STAGE II

REACTIONS (7)
  - ABDOMINAL PAIN [None]
  - ALANINE AMINOTRANSFERASE INCREASED [None]
  - DECREASED APPETITE [None]
  - GASTRITIS EROSIVE [None]
  - GRAND MAL CONVULSION [None]
  - NAUSEA [None]
  - PORPHYRIA ACUTE [None]
